FAERS Safety Report 6439229-X (Version None)
Quarter: 2009Q4

REPORT INFORMATION
  Report Type: 
  Country: None (occurrence: None)
  Receive Date: 20091111
  Receipt Date: 20091111
  Transmission Date: 20100525
  Serious: Yes (Other)
  Sender: FDA-Public Use
  Company Number: None

PATIENT
  Age: 57 Year
  Sex: Male

DRUGS (1)
  1. ALEVE-D SINUS + COLD [Suspect]
     Indication: NASAL CONGESTION
     Dosage: 1 CAPLET EVERY 12 HOURS PO
     Route: 048
     Dates: start: 20091106, end: 20091106

REACTIONS (6)
  - DYSPNOEA [None]
  - FAECAL INCONTINENCE [None]
  - MALAISE [None]
  - PAIN IN EXTREMITY [None]
  - PRODUCT QUALITY ISSUE [None]
  - SYNCOPE [None]
